FAERS Safety Report 6401055-5 (Version None)
Quarter: 2009Q4

REPORT INFORMATION
  Report Type: 
  Country: None (occurrence: None)
  Receive Date: 20091009
  Receipt Date: 20091009
  Transmission Date: 20100525
  Serious: Yes (Hospitalization, Other)
  Sender: FDA-Public Use
  Company Number: None

PATIENT
  Sex: Female
  Weight: 78.4723 kg

DRUGS (1)
  1. LEXISCAN [Suspect]
     Indication: CORONARY ARTERY DISEASE
     Dates: start: 20090927, end: 20090927

REACTIONS (3)
  - ANGINA PECTORIS [None]
  - LOSS OF CONSCIOUSNESS [None]
  - SYNCOPE [None]
